FAERS Safety Report 8107239-2 (Version None)
Quarter: 2012Q1

REPORT INFORMATION
  Report Type: 
  Country: None (occurrence: None)
  Receive Date: 20120202
  Receipt Date: 20120124
  Transmission Date: 20120608
  Serious: Yes (Other)
  Sender: FDA-Public Use
  Company Number: GB-GENZYME-MOZO-1000636

PATIENT

DRUGS (2)
  1. MOZOBIL [Suspect]
     Indication: NON-HODGKIN'S LYMPHOMA
  2. MOZOBIL [Suspect]
     Indication: HAEMATOPOIETIC STEM CELL MOBILISATION
     Route: 065

REACTIONS (3)
  - PULMONARY EMBOLISM [None]
  - THERAPEUTIC RESPONSE DECREASED [None]
  - DEEP VEIN THROMBOSIS [None]
